FAERS Safety Report 7668410-7 (Version None)
Quarter: 2011Q3

REPORT INFORMATION
  Report Type: 
  Country: None (occurrence: None)
  Receive Date: 20110808
  Receipt Date: 20110725
  Transmission Date: 20111222
  Serious: Yes (Hospitalization)
  Sender: FDA-Public Use
  Company Number: US-ELI_LILLY_AND_COMPANY-US201103008863

PATIENT
  Sex: Female

DRUGS (9)
  1. FORTEO [Suspect]
     Dosage: 20 UG, QD
  2. FUROSEMIDE [Concomitant]
  3. FORTEO [Suspect]
     Indication: OSTEOPOROSIS
     Dosage: 20 UG, QD
     Dates: start: 20101101
  4. VERAPAMIL [Concomitant]
  5. LORTAB [Concomitant]
  6. METOPROLOL TARTRATE [Concomitant]
  7. ADVAIR DISKUS 100/50 [Concomitant]
  8. XANAX [Concomitant]
  9. COMBIVENT [Concomitant]

REACTIONS (9)
  - NASAL CONGESTION [None]
  - FATIGUE [None]
  - ASTHENIA [None]
  - DYSPNOEA [None]
  - DYSSTASIA [None]
  - BRONCHITIS CHRONIC [None]
  - MALAISE [None]
  - DEPRESSION [None]
  - VITAMIN B12 DECREASED [None]
